FAERS Safety Report 9718938 (Version 1)
Quarter: 2013Q4

REPORT INFORMATION
  Report Type: Spontaneous
  Country: US (occurrence: US)
  Receive Date: 20131127
  Receipt Date: 20131127
  Transmission Date: 20140711
  Serious: No
  Sender: FDA-Public Use
  Company Number: US-B.I. PHARMACEUTICALS,INC./RIDGEFIELD-2013-BI-37750BP

PATIENT
  Age: 82 Year
  Sex: Female
  Weight: 75 kg

DRUGS (2)
  1. COMBIVENT [Suspect]
     Indication: HAEMOPTYSIS
     Dosage: DOSE PER APPLICATION: 18 MCG / 103 MCG;
     Route: 055
  2. FLOVENT [Concomitant]
     Indication: HAEMOPTYSIS
     Route: 055

REACTIONS (1)
  - Off label use [Not Recovered/Not Resolved]
